FAERS Safety Report 18157991 (Version 1)
Quarter: 2020Q3

REPORT INFORMATION
  Report Type: Spontaneous
  Country: US (occurrence: US)
  Receive Date: 20200817
  Receipt Date: 20200817
  Transmission Date: 20201103
  Serious: No
  Sender: FDA-Public Use
  Company Number: US-MEDEXUS PHARMA, INC.-2019MED00221

PATIENT
  Sex: Female

DRUGS (9)
  1. RASUVO [Suspect]
     Active Substance: METHOTREXATE SODIUM
     Indication: SYSTEMIC LUPUS ERYTHEMATOSUS
     Dosage: 15 MG
     Route: 058
     Dates: end: 20190916
  2. PANTOPRAZOLE [Concomitant]
     Active Substance: PANTOPRAZOLE
  3. GABAPENTIN. [Concomitant]
     Active Substance: GABAPENTIN
  4. FOLIC ACID. [Concomitant]
     Active Substance: FOLIC ACID
  5. BACLOFEN. [Concomitant]
     Active Substance: BACLOFEN
  6. VITAMIN D3 [Concomitant]
     Active Substance: CHOLECALCIFEROL
  7. CEPHALEXIN. [Concomitant]
     Active Substance: CEPHALEXIN
  8. HYDROCODONE [Concomitant]
     Active Substance: HYDROCODONE
  9. NORTRIPTYLINE [Concomitant]
     Active Substance: NORTRIPTYLINE

REACTIONS (6)
  - Pain [Recovered/Resolved]
  - Vomiting [Recovered/Resolved]
  - Product use in unapproved indication [Recovered/Resolved]
  - Alopecia [Not Recovered/Not Resolved]
  - Nausea [Recovered/Resolved]
  - Hypophagia [Unknown]
